FAERS Safety Report 6771136-5 (Version None)
Quarter: 2010Q2

REPORT INFORMATION
  Report Type: 
  Country: None (occurrence: None)
  Receive Date: 20100614
  Receipt Date: 20100614
  Transmission Date: 20101027
  Serious: Yes (Disabling)
  Sender: FDA-Public Use
  Company Number: None

PATIENT
  Age: 55 Year
  Sex: Male
  Weight: 123.3784 kg

DRUGS (1)
  1. INTELENCE [Suspect]
     Indication: HIV INFECTION
     Dosage: 100 MG 4 DAILY
     Dates: start: 20100101, end: 20100601

REACTIONS (1)
  - FAT TISSUE INCREASED [None]
